FAERS Safety Report 7458622-X (Version None)
Quarter: 2011Q2

REPORT INFORMATION
  Report Type: 
  Country: None (occurrence: None)
  Receive Date: 20110504
  Receipt Date: 20110421
  Transmission Date: 20111010
  Serious: Yes (Hospitalization)
  Sender: FDA-Public Use
  Company Number: US-ELI_LILLY_AND_COMPANY-US201104006543

PATIENT
  Sex: Female

DRUGS (6)
  1. CYMBALTA [Suspect]
     Dosage: 60 MG, QD
  2. CYMBALTA [Suspect]
     Dosage: 30 MG, QD
  3. CYMBALTA [Suspect]
     Dosage: 60 MG, QD
  4. CYMBALTA [Suspect]
     Indication: DEPRESSION
     Dosage: 60 MG, QD
  5. CYMBALTA [Suspect]
     Dosage: 60 MG, QD
  6. CYMBALTA [Suspect]
     Dosage: 30 MG, QD

REACTIONS (3)
  - SPINAL FUSION SURGERY [None]
  - CRYING [None]
  - DEPRESSION [None]
